FAERS Safety Report 9803730 (Version 2)
Quarter: 2014Q1

REPORT INFORMATION
  Report Type: Spontaneous
  Country: US (occurrence: US)
  Receive Date: 20140108
  Receipt Date: 20140117
  Transmission Date: 20141002
  Serious: Yes (Death)
  Sender: FDA-Public Use
  Company Number: US-009507513-1401USA001758

PATIENT
  Age: 61 Year
  Sex: Male

DRUGS (4)
  1. ORGATRAX [Suspect]
     Dosage: UNK
  2. GABAPENTIN [Suspect]
     Dosage: UNK
  3. IBUPROFEN [Suspect]
     Dosage: UNK
  4. PAROXETINE [Suspect]
     Dosage: UNK

REACTIONS (1)
  - Death [Fatal]
